FAERS Safety Report 9556201 (Version 1)
Quarter: 2013Q3

REPORT INFORMATION
  Report Type: Spontaneous
  Country: US (occurrence: None)
  Receive Date: 20130906
  Receipt Date: 20130906
  Transmission Date: 20140515
  Serious: Yes (Other)
  Sender: FDA-Public Use
  Company Number: 163-POMAL-13063357

PATIENT
  Age: 78 Year
  Sex: Male
  Weight: 168 kg

DRUGS (19)
  1. POMALYST [Suspect]
     Indication: PLASMA CELL MYELOMA
     Dosage: 3 MG, 21 IN 28 D, PO
     Route: 048
     Dates: start: 20130426, end: 2013
  2. ACYCLOVIR (ACICLOVIR) [Concomitant]
  3. ADVIL (IBUPROFEN) [Concomitant]
  4. ASA (ACETYLSALICYLIC ACID) [Concomitant]
  5. CALCIUM CITRATE (CALCIUM CITRATE) [Concomitant]
  6. BISACODYL (BISACODYL) [Concomitant]
  7. FINASTERIDE (FINASTERIDE) [Concomitant]
  8. VITAMINS [Concomitant]
  9. ONDANSETRON (ONDANSETRON) [Concomitant]
  10. POTASSIUM CITRATE (POTASSIUM CITRATE) [Concomitant]
  11. TEMAZEPAM (TEMAZEPAM) [Concomitant]
  12. IMODIUM A-D (LOPERAMIDE HYDROCHLORIDE) [Concomitant]
  13. ANTI-GAS ULTRA STR (ANTI GAS FORMULA) [Concomitant]
  14. TYLENOL (PARACETAMOL) [Concomitant]
  15. PROCRIT [Concomitant]
  16. VELCADE (BORTEZOMIB) [Concomitant]
  17. DEXAMETHASONE (DEXAMETHASONE) [Concomitant]
  18. FUROSEMIDE (FUROSEMIDE) [Concomitant]
  19. ZOMETA (ZOLEDRONIC ACID) [Concomitant]

REACTIONS (4)
  - Platelet count decreased [None]
  - White blood cell count decreased [None]
  - Rhinorrhoea [None]
  - Cough [None]
